FAERS Safety Report 8398540-6 (Version None)
Quarter: 2012Q2

REPORT INFORMATION
  Report Type: 
  Country: None (occurrence: None)
  Receive Date: 20120531
  Receipt Date: 20120522
  Transmission Date: 20120825
  Serious: Yes (Hospitalization, Other)
  Sender: FDA-Public Use
  Company Number: DE-VERTEX PHARMACEUTICALS INC.-000000000000000766

PATIENT
  Sex: Female

DRUGS (4)
  1. RIBAVIRIN [Concomitant]
     Indication: HEPATITIS C
     Dosage: DOSAGE FORM: UNSPECIFIED
     Route: 048
  2. INCIVO [Suspect]
     Indication: HEPATITIS C
     Dosage: DOSAGE FORM: TABLET
     Route: 048
     Dates: start: 20120101, end: 20120401
  3. PEG INTERFERON [Concomitant]
     Dosage: DOSAGE FORM: INJECTION
     Route: 065
  4. PEG INTERFERON [Concomitant]
     Indication: HEPATITIS C
     Dosage: DOSAGE FORM: INJECTION
     Route: 065

REACTIONS (4)
  - PYREXIA [None]
  - ANAEMIA [None]
  - EOSINOPHILIA [None]
  - RASH [None]
